FAERS Safety Report 7705713-1 (Version None)
Quarter: 2011Q3

REPORT INFORMATION
  Report Type: 
  Country: None (occurrence: None)
  Receive Date: 20110824
  Receipt Date: 20110408
  Transmission Date: 20111222
  Serious: Yes (Death, Other)
  Sender: FDA-Public Use
  Company Number: US-BAYER-2011-006837

PATIENT
  Age: 48 Year
  Sex: Female

DRUGS (1)
  1. TRASYLOL [Suspect]
     Indication: PRODUCT USED FOR UNKNOWN INDICATION
     Dosage: UNK
     Route: 042
     Dates: start: 19961118

REACTIONS (12)
  - CARDIO-RESPIRATORY ARREST [None]
  - HYPOTENSION [None]
  - UNEVALUABLE EVENT [None]
  - STRESS [None]
  - ANXIETY [None]
  - PAIN [None]
  - ACUTE RESPIRATORY DISTRESS SYNDROME [None]
  - EMOTIONAL DISTRESS [None]
  - CARDIAC OPERATION [None]
  - RENAL FAILURE [None]
  - FEAR [None]
  - INJURY [None]
